FAERS Safety Report 15948537 (Version 1)
Quarter: 2019Q1

REPORT INFORMATION
  Report Type: Spontaneous
  Country: DK (occurrence: DK)
  Receive Date: 20190212
  Receipt Date: 20190212
  Transmission Date: 20190417
  Serious: Yes (Life-Threatening, Hospitalization)
  Sender: FDA-Public Use
  Company Number: DK-ACCORD-106494

PATIENT
  Age: 43 Year
  Sex: Female

DRUGS (17)
  1. ELTROXIN [Concomitant]
     Active Substance: LEVOTHYROXINE
     Indication: HYPOTHYROIDISM
     Dosage: STRENGTH: 100 MICROGRAM
     Route: 048
     Dates: start: 20151005
  2. VIBEDEN [Concomitant]
     Indication: VITAMIN B12 DEFICIENCY
     Dosage: STRENGTH: 1 MG/ML
     Route: 030
  3. RIVOTRIL [Concomitant]
     Active Substance: CLONAZEPAM
     Indication: BIPOLAR DISORDER
     Dosage: STRENGTH: 0,5 MG
     Route: 048
     Dates: start: 20160203
  4. GLYTRIN [Concomitant]
     Indication: ANGINA PECTORIS
     Dosage: STRENGTH: 0.4 MG / DOSE. DOSAGE: 1 BREATH AS NEEDED, MAXIMUM 3 TIMES DAILY
     Route: 060
     Dates: start: 20161206
  5. METFORMIN [Concomitant]
     Active Substance: METFORMIN HYDROCHLORIDE
     Indication: TYPE 2 DIABETES MELLITUS
     Dosage: STRENGTH: 500 MG
     Route: 048
     Dates: start: 20160228
  6. PINEX [Concomitant]
     Indication: PAIN
     Dosage: STRENGTH: 500 MG. DOSAGE: 2 TABLETS AS NEEDED
     Route: 048
     Dates: start: 20160123, end: 20180418
  7. ACETYLSALICYLIC ACID [Concomitant]
     Active Substance: ASPIRIN
     Indication: THROMBOSIS PROPHYLAXIS
     Route: 048
     Dates: start: 20161205
  8. EZETROL [Concomitant]
     Active Substance: EZETIMIBE
     Indication: HYPERCHOLESTEROLAEMIA
     Dosage: STRENGTH: 10 MG.
     Route: 048
     Dates: start: 20161208
  9. DELEPSINE RETARD [Concomitant]
     Active Substance: VALPROATE SODIUM
     Indication: MOOD SWINGS
     Dosage: STRENGTH: 500 MG
     Route: 048
     Dates: start: 20160902
  10. ATORVASTATIN [Concomitant]
     Active Substance: ATORVASTATIN
     Indication: HYPERCHOLESTEROLAEMIA
     Dosage: STRENGTH: 80 MG
     Route: 048
     Dates: start: 20161206
  11. QUETIAPINE ACCORD [Suspect]
     Active Substance: QUETIAPINE
     Indication: BIPOLAR DISORDER
     Dosage: STRENGTH: 300 MG
     Route: 048
     Dates: start: 20160202
  12. QUETIAPINE ACTAVIS [Suspect]
     Active Substance: QUETIAPINE
     Indication: BIPOLAR DISORDER
     Dosage: STRENGTH: 25 MG
     Route: 048
     Dates: start: 20160202
  13. PANTOPRAZOLE [Concomitant]
     Active Substance: PANTOPRAZOLE
     Indication: PROPHYLAXIS AGAINST GASTROINTESTINAL ULCER
     Dosage: STRENGTH: 20 MG
     Route: 048
     Dates: start: 20150928
  14. ATENODAN [Concomitant]
     Indication: HYPERTENSION
     Dosage: STRENGTH: 25 MG
     Route: 048
     Dates: start: 20150928
  15. LITHIUM. [Concomitant]
     Active Substance: LITHIUM
     Indication: MOOD SWINGS
     Dosage: STRENGTH: 300 MG (8.1 MOLES LI +)
     Route: 048
     Dates: start: 20150928
  16. TRAMADOL. [Concomitant]
     Active Substance: TRAMADOL
     Indication: PAIN
     Dosage: STRENGTH: 100 MG
     Route: 048
     Dates: start: 20170726, end: 20180516
  17. ALIROCUMAB [Concomitant]
     Active Substance: ALIROCUMAB
     Indication: HYPERCHOLESTEROLAEMIA
     Dosage: STRENGTH: 75 MG
     Route: 058
     Dates: start: 20170920

REACTIONS (2)
  - Hypertriglyceridaemia [Unknown]
  - Pancreatitis acute [Unknown]

NARRATIVE: CASE EVENT DATE: 201805
